FAERS Safety Report 9537756 (Version 2)
Quarter: 2013Q4

REPORT INFORMATION
  Report Type: Spontaneous
  Country: US (occurrence: US)
  Receive Date: 20130919
  Receipt Date: 20131024
  Transmission Date: 20140711
  Serious: Yes (Hospitalization)
  Sender: FDA-Public Use
  Company Number: US-INCYTE CORPORATION-2013IN002103

PATIENT
  Age: 80 Year
  Sex: Female
  Weight: 74.83 kg

DRUGS (6)
  1. JAKAFI [Suspect]
     Indication: MYELOFIBROSIS
     Dosage: 20 MG, BID
     Route: 048
     Dates: start: 201306
  2. PROCRIT [Concomitant]
     Dosage: 10,000 UNITS/ML
  3. MACRODANTIN [Concomitant]
  4. VITAMIN D [Concomitant]
  5. ASPIRIN [Concomitant]
  6. MULTIVITAMIN [Concomitant]

REACTIONS (7)
  - Pulmonary embolism [Unknown]
  - Pulmonary oedema [Unknown]
  - Thrombosis [Unknown]
  - Pain in extremity [Unknown]
  - Bone pain [Unknown]
  - Gait disturbance [Unknown]
  - Haemoglobin decreased [Unknown]
